FAERS Safety Report 5792964-9 (Version None)
Quarter: 2008Q2

REPORT INFORMATION
  Report Type: 
  Country: None (occurrence: None)
  Receive Date: 20080626
  Receipt Date: 20080626
  Transmission Date: 20081010
  Serious: No
  Sender: FDA-Public Use
  Company Number: None

PATIENT

DRUGS (1)
  1. SENSORCAINE [Suspect]
     Indication: ANAESTHESIA
     Dosage: 2ML ONCE INTRATRACHEAL
     Route: 039
     Dates: start: 20080604, end: 20080625

REACTIONS (1)
  - DRUG INEFFECTIVE [None]
